FAERS Safety Report 5166741-6 (Version None)
Quarter: 2006Q4

REPORT INFORMATION
  Report Type: 
  Country: None (occurrence: None)
  Receive Date: 20061207
  Receipt Date: 20061204
  Transmission Date: 20070319
  Serious: Yes (Hospitalization)
  Sender: FDA-Public Use
  Company Number: FR-AVENTIS-200614257FR

PATIENT
  Age: 85 Year
  Sex: Female

DRUGS (5)
  1. GLIMEPIRIDE [Suspect]
     Indication: DIABETES MELLITUS NON-INSULIN-DEPENDENT
     Route: 048
  2. ISOPTIN [Concomitant]
     Indication: DRUG USE FOR UNKNOWN INDICATION
     Route: 048
  3. KARDEGIC                           /00002703/ [Concomitant]
     Indication: DRUG USE FOR UNKNOWN INDICATION
     Route: 048
  4. TAHOR [Concomitant]
     Indication: DRUG USE FOR UNKNOWN INDICATION
  5. COAPROVEL [Concomitant]

REACTIONS (2)
  - HYPOGLYCAEMIC COMA [None]
  - OXYGEN SATURATION DECREASED [None]
